FAERS Safety Report 8778732 (Version 1)
Quarter: 2012Q4

REPORT INFORMATION
  Report Type: 
  Country: US (occurrence: US)
  Receive Date: 20120912
  Receipt Date: 20120912
  Transmission Date: 20130627
  Serious: No
  Sender: FDA-Public Use
  Company Number: US-PFIZER INC-2012223854

PATIENT
  Age: 25 Year
  Sex: Female
  Weight: 86.17 kg

DRUGS (3)
  1. LYRICA [Suspect]
     Indication: PAIN
     Dosage: 150 mg, 2x/day
     Route: 048
     Dates: start: 2009
  2. LYRICA [Suspect]
     Dosage: 25 mg, 2x/day
     Route: 048
  3. WELLBUTRIN [Concomitant]
     Dosage: UNK

REACTIONS (1)
  - Withdrawal syndrome [Unknown]
